FAERS Safety Report 10611978 (Version 1)
Quarter: 2014Q4

REPORT INFORMATION
  Report Type: Report from Study
  Country: US (occurrence: US)
  Receive Date: 20141126
  Receipt Date: 20141126
  Transmission Date: 20150529
  Serious: Yes (Other)
  Sender: FDA-Public Use
  Company Number: US-GILEAD-2014-0124190

PATIENT
  Age: 61 Year
  Sex: Male

DRUGS (3)
  1. SOFOSBUVIR [Suspect]
     Active Substance: SOFOSBUVIR
     Indication: PRODUCT USED FOR UNKNOWN INDICATION
     Dosage: 400 MG, UNK
     Route: 065
     Dates: start: 20141011
  2. OLYSIO [Concomitant]
     Active Substance: SIMEPREVIR
     Dosage: 150 MG, UNK
     Dates: start: 20141011
  3. RIBAVIRIN. [Concomitant]
     Active Substance: RIBAVIRIN
     Dosage: UNK
     Dates: start: 20141011

REACTIONS (4)
  - Neoplasm malignant [Unknown]
  - Asthenia [Unknown]
  - Somnolence [Unknown]
  - Irritability [Unknown]
